FAERS Safety Report 9621602 (Version 1)
Quarter: 2013Q4

REPORT INFORMATION
  Report Type: Spontaneous
  Country: US (occurrence: US)
  Receive Date: 20131015
  Receipt Date: 20131015
  Transmission Date: 20140711
  Serious: No
  Sender: FDA-Public Use
  Company Number: US-PFIZER INC-2013294232

PATIENT
  Age: 61 Year
  Sex: Male

DRUGS (7)
  1. NEURONTIN [Suspect]
     Dosage: UNK
  2. CYMBALTA [Suspect]
  3. FLEXERIL [Suspect]
     Dosage: UNK
  4. NAPROSYN [Suspect]
     Dosage: UNK
  5. PRAVACHOL [Suspect]
     Dosage: UNK
  6. ULTRAM [Suspect]
     Dosage: UNK
  7. VICODIN [Suspect]
     Dosage: UNK

REACTIONS (1)
  - Drug hypersensitivity [Unknown]
